FAERS Safety Report 8515862-6 (Version None)
Quarter: 2012Q3

REPORT INFORMATION
  Report Type: 
  Country: None (occurrence: None)
  Receive Date: 20120717
  Receipt Date: 20120711
  Transmission Date: 20120928
  Serious: Yes (Other)
  Sender: FDA-Public Use
  Company Number: DE-ROXANE LABORATORIES, INC.-2012-RO-01536RO

PATIENT
  Age: 55 Year
  Sex: Female

DRUGS (5)
  1. FENTANYL [Suspect]
     Indication: BACK PAIN
     Route: 062
  2. BUPRENORPHINE HCL [Suspect]
     Indication: BACK PAIN
     Dosage: 0.8 MG
     Route: 048
  3. BUPRENORPHINE [Suspect]
     Indication: BACK PAIN
     Route: 062
  4. TILIDIN [Suspect]
     Indication: BACK PAIN
     Dosage: 150 MG
     Route: 048
  5. BUPRENORPHINE [Suspect]
     Route: 062

REACTIONS (2)
  - CONSTIPATION [None]
  - IMPAIRED GASTRIC EMPTYING [None]
